FAERS Safety Report 17634006 (Version 3)
Quarter: 2020Q3

REPORT INFORMATION
  Report Type: Report from Study
  Country: None (occurrence: CO)
  Receive Date: 20200407
  Receipt Date: 20200904
  Transmission Date: 20201102
  Serious: Yes (Other)
  Sender: FDA-Public Use
  Company Number: CO-ABBVIE-20K-036-3353391-00

PATIENT
  Age: 56 Year
  Sex: Male
  Weight: 75 kg

DRUGS (2)
  1. HUMIRA [Suspect]
     Active Substance: ADALIMUMAB
     Indication: ANKYLOSING SPONDYLITIS
     Route: 058
     Dates: start: 20090825
  2. HUMIRA [Suspect]
     Active Substance: ADALIMUMAB
     Indication: ANKYLOSING SPONDYLITIS
     Route: 058
     Dates: end: 20191219

REACTIONS (15)
  - Osteoarthritis [Recovering/Resolving]
  - Back pain [Recovering/Resolving]
  - Fibromyalgia [Recovered/Resolved]
  - Fibromyalgia [Recovering/Resolving]
  - Nasal congestion [Recovering/Resolving]
  - Unevaluable event [Recovering/Resolving]
  - Uveitis [Recovered/Resolved]
  - Glaucoma [Recovering/Resolving]
  - Uveitis [Recovering/Resolving]
  - Osteoporosis [Recovering/Resolving]
  - Hip arthroplasty [Recovering/Resolving]
  - Hip arthroplasty [Recovering/Resolving]
  - Tinnitus [Recovering/Resolving]
  - Osteoporosis [Recovering/Resolving]
  - Tonsillitis [Recovering/Resolving]

NARRATIVE: CASE EVENT DATE: 2010
